FAERS Safety Report 18177324 (Version 1)
Quarter: 2020Q3

REPORT INFORMATION
  Report Type: Spontaneous
  Country: CA (occurrence: CA)
  Receive Date: 20200820
  Receipt Date: 20200820
  Transmission Date: 20201103
  Serious: Yes (Hospitalization)
  Sender: FDA-Public Use
  Company Number: CA-TEVA-2020-CA-1816413

PATIENT
  Age: 2 Year
  Sex: Male
  Weight: 13 kg

DRUGS (9)
  1. DAUNOMYCIN /00128201/ [Concomitant]
     Active Substance: DAUNORUBICIN
  2. METRONIDAZOLE. [Concomitant]
     Active Substance: METRONIDAZOLE
  3. FAMOTIDINE. [Concomitant]
     Active Substance: FAMOTIDINE
  4. IMATINIB. [Suspect]
     Active Substance: IMATINIB MESYLATE
     Route: 065
  5. PREDNISONE. [Concomitant]
     Active Substance: PREDNISONE
  6. ONCOVIN [Concomitant]
     Active Substance: VINCRISTINE SULFATE
  7. ONDANSETRON [Concomitant]
     Active Substance: ONDANSETRON
  8. DIMENHYDRINATE. [Concomitant]
     Active Substance: DIMENHYDRINATE
  9. VANCOMYCIN [Concomitant]
     Active Substance: VANCOMYCIN

REACTIONS (11)
  - Abdominal pain [Recovered/Resolved]
  - Eye colour change [Recovered/Resolved]
  - Fluid intake reduced [Recovered/Resolved]
  - Lethargy [Recovered/Resolved]
  - Hepatomegaly [Recovered/Resolved]
  - Congestive hepatopathy [Recovered/Resolved]
  - Hepatic enzyme increased [Recovered/Resolved]
  - Ocular icterus [Recovered/Resolved]
  - Blood bilirubin increased [Recovered/Resolved]
  - Hypophagia [Recovered/Resolved]
  - Somnolence [Recovered/Resolved]
